FAERS Safety Report 9049374 (Version 1)
Quarter: 2013Q1

REPORT INFORMATION
  Report Type: Other
  Country: DE (occurrence: DE)
  Receive Date: 20130205
  Receipt Date: 20130205
  Transmission Date: 20140127
  Serious: Yes (Other)
  Sender: FDA-Public Use
  Company Number: DE-WATSON-2013-01050

PATIENT
  Age: 67 Year
  Sex: Male

DRUGS (1)
  1. ZOLPIDEM TARTRATE (UNKNOWN) [Suspect]
     Indication: INSOMNIA
     Dosage: 10 MG, 1 TOTAL
     Route: 048
     Dates: start: 201212, end: 201212

REACTIONS (4)
  - Depression [Recovered/Resolved]
  - Aura [Recovered/Resolved]
  - Tremor [Recovered/Resolved]
  - Hyperhidrosis [Recovered/Resolved]
